FAERS Safety Report 23114331 (Version 3)
Quarter: 2023Q4

REPORT INFORMATION
  Report Type: Report from Study
  Country: DE (occurrence: DE)
  Receive Date: 20231027
  Receipt Date: 20231114
  Transmission Date: 20240110
  Serious: Yes (Other)
  Sender: FDA-Public Use
  Company Number: DE-ABBVIE-5464339

PATIENT
  Age: 76 Year
  Sex: Female

DRUGS (9)
  1. CARBIDOPA\LEVODOPA [Suspect]
     Active Substance: CARBIDOPA\LEVODOPA
     Indication: Parkinson^s disease
     Dosage: MD: 5.0ML CRD: 2.5ML/H ED: 1.0ML
     Route: 050
     Dates: start: 20200220
  2. CARBIDOPA\LEVODOPA [Suspect]
     Active Substance: CARBIDOPA\LEVODOPA
  3. ATENOLOL [Concomitant]
     Active Substance: ATENOLOL
     Indication: Product used for unknown indication
  4. LEVOTHYROXINE SODIUM [Concomitant]
     Active Substance: LEVOTHYROXINE SODIUM
     Indication: Product used for unknown indication
  5. PREGABALIN [Concomitant]
     Active Substance: PREGABALIN
     Indication: Product used for unknown indication
  6. NORTRIPTYLINE [Concomitant]
     Active Substance: NORTRIPTYLINE
     Indication: Product used for unknown indication
  7. ASPIRIN [Concomitant]
     Active Substance: ASPIRIN
     Indication: Product used for unknown indication
     Dosage: FORM STRENGTH- 100 UNIT- UNKNOWN
  8. TORSEMIDE [Concomitant]
     Active Substance: TORSEMIDE
     Indication: Product used for unknown indication
  9. CHOLECALCIFEROL [Concomitant]
     Active Substance: CHOLECALCIFEROL
     Indication: Product used for unknown indication
     Dosage: 1000

REACTIONS (15)
  - Upper gastrointestinal haemorrhage [Not Recovered/Not Resolved]
  - Urosepsis [Unknown]
  - Enteral nutrition [Not Recovered/Not Resolved]
  - Akinesia [Unknown]
  - Bronchitis [Unknown]
  - Haematemesis [Unknown]
  - Hernia [Unknown]
  - Arterial repair [Unknown]
  - Joint contracture [Unknown]
  - Diarrhoea [Unknown]
  - Dysphagia [Unknown]
  - Pseudomonas infection [Unknown]
  - Hereditary motor and sensory neuropathy [Unknown]
  - Hypertension [Unknown]
  - Parkinsonism [Unknown]

NARRATIVE: CASE EVENT DATE: 20210901
